FAERS Safety Report 13365844 (Version 1)
Quarter: 2017Q1

REPORT INFORMATION
  Report Type: Spontaneous
  Country: US (occurrence: US)
  Receive Date: 20170323
  Receipt Date: 20170323
  Transmission Date: 20170429
  Serious: No
  Sender: FDA-Public Use
  Company Number: US-ALLERGAN-2016-002625

PATIENT
  Age: 54 Year
  Sex: Female

DRUGS (2)
  1. ESTRACE [Suspect]
     Active Substance: ESTRADIOL
     Indication: OESTROGEN REPLACEMENT THERAPY
     Dosage: 1 G 2-3 TIMES WEEKLY
     Route: 067
     Dates: start: 201611
  2. ESTRACE [Suspect]
     Active Substance: ESTRADIOL
     Dosage: 1 G DAILY FOR TWO WEEKS
     Route: 067
     Dates: start: 20161101, end: 201611

REACTIONS (3)
  - Dizziness [Recovered/Resolved]
  - Incorrect dosage administered [Unknown]
  - Nausea [Recovered/Resolved]

NARRATIVE: CASE EVENT DATE: 20161101
